FAERS Safety Report 14875922 (Version 3)
Quarter: 2018Q4

REPORT INFORMATION
  Report Type: Report from Study
  Country: US (occurrence: US)
  Receive Date: 20180510
  Receipt Date: 20181116
  Transmission Date: 20190204
  Serious: Yes (Life-Threatening, Hospitalization, Other)
  Sender: FDA-Public Use
  Company Number: PHEH2018US016841

PATIENT
  Sex: Female
  Weight: 162.5 kg

DRUGS (1)
  1. ENTRESTO [Suspect]
     Active Substance: SACUBITRIL\VALSARTAN
     Indication: CARDIAC FAILURE CHRONIC
     Dosage: 1 DF (SACUBITRIL 24MG /VALSARTAN 26MG), UNK
     Route: 048
     Dates: start: 201711

REACTIONS (10)
  - Arthralgia [Unknown]
  - Cough [Unknown]
  - Asthenia [Unknown]
  - Hypersensitivity [Unknown]
  - Chest discomfort [Recovering/Resolving]
  - Hypokinesia [Unknown]
  - Fatigue [Unknown]
  - Dyspnoea [Unknown]
  - Hypertension [Unknown]
  - Tumour pain [Unknown]
